FAERS Safety Report 21329121 (Version 1)
Quarter: 2022Q3

REPORT INFORMATION
  Report Type: Spontaneous
  Country: US (occurrence: None)
  Receive Date: 20220913
  Receipt Date: 20220913
  Transmission Date: 20221026
  Serious: Yes (Life-Threatening, Hospitalization)
  Sender: FDA-Public Use
  Company Number: None

PATIENT
  Age: 97 Year
  Sex: Male

DRUGS (1)
  1. RIVAROXABAN [Suspect]
     Active Substance: RIVAROXABAN
     Indication: Atrial fibrillation
     Dates: start: 20180601, end: 20220301

REACTIONS (4)
  - Haemorrhage [None]
  - Skin laceration [None]
  - Haemoglobin decreased [None]
  - International normalised ratio abnormal [None]

NARRATIVE: CASE EVENT DATE: 20220131
